FAERS Safety Report 7277785-2 (Version None)
Quarter: 2011Q1

REPORT INFORMATION
  Report Type: 
  Country: None (occurrence: None)
  Receive Date: 20110207
  Receipt Date: 20101122
  Transmission Date: 20110831
  Serious: No
  Sender: FDA-Public Use
  Company Number: A0894518A

PATIENT
  Age: 37 Year
  Sex: Female

DRUGS (2)
  1. PROTOPIC [Concomitant]
  2. OLUX E [Suspect]
     Dosage: 1APP PER DAY
     Route: 061
     Dates: start: 20101115, end: 20101121

REACTIONS (1)
  - DRUG INEFFECTIVE [None]
